FAERS Safety Report 18882164 (Version 1)
Quarter: 2021Q1

REPORT INFORMATION
  Report Type: Report from Study
  Country: US (occurrence: US)
  Receive Date: 20210211
  Receipt Date: 20210211
  Transmission Date: 20210420
  Serious: Yes (Hospitalization)
  Sender: FDA-Public Use
  Company Number: US-EXELIXIS-CABO-21037257

PATIENT
  Sex: Female

DRUGS (1)
  1. COMETRIQ [Suspect]
     Active Substance: CABOZANTINIB S-MALATE
     Indication: THYROID CANCER
     Dosage: 140 MG, QD (1 CAPSULE OF 80 MG AND 3 CAPSULES OF 20 MG)
     Route: 048
     Dates: start: 20210121

REACTIONS (9)
  - Cholelithiasis [Unknown]
  - Fatigue [Unknown]
  - Blood pressure increased [Unknown]
  - Skin exfoliation [Unknown]
  - Ageusia [Unknown]
  - Thrombosis [Unknown]
  - Dry mouth [Unknown]
  - Nausea [Unknown]
  - Diarrhoea [Unknown]
